FAERS Safety Report 21612981 (Version 1)
Quarter: 2022Q4

REPORT INFORMATION
  Report Type: Report from Study
  Country: JP (occurrence: JP)
  Receive Date: 20221118
  Receipt Date: 20221118
  Transmission Date: 20230113
  Serious: Yes (Hospitalization, Other)
  Sender: FDA-Public Use
  Company Number: JP-KYOWAKIRIN-2022AKK017556

PATIENT
  Age: 51 Year
  Sex: Male

DRUGS (22)
  1. ROMIPLOSTIM [Suspect]
     Active Substance: ROMIPLOSTIM
     Indication: Aplastic anaemia
     Dosage: 1500 DOSAGE FORM, Q2WK
     Route: 058
     Dates: start: 20210816, end: 20211011
  2. ROMIPLOSTIM [Suspect]
     Active Substance: ROMIPLOSTIM
     Dosage: 750 DOSAGE FORM, QWK
     Route: 058
     Dates: start: 20200117, end: 20200221
  3. ROMIPLOSTIM [Suspect]
     Active Substance: ROMIPLOSTIM
     Dosage: 1000 DOSAGE FORM
     Route: 058
     Dates: start: 20200228, end: 20200228
  4. ROMIPLOSTIM [Suspect]
     Active Substance: ROMIPLOSTIM
     Dosage: 1000 DOSAGE FORM
     Route: 058
     Dates: start: 20200303, end: 20200303
  5. ROMIPLOSTIM [Suspect]
     Active Substance: ROMIPLOSTIM
     Dosage: 1000 DOSAGE FORM
     Route: 058
     Dates: start: 20200306, end: 20200306
  6. ROMIPLOSTIM [Suspect]
     Active Substance: ROMIPLOSTIM
     Dosage: 1500 DOSAGE FORM, QWK
     Route: 058
     Dates: start: 20200313, end: 20200522
  7. ROMIPLOSTIM [Suspect]
     Active Substance: ROMIPLOSTIM
     Dosage: 1500 DOSAGE FORM, Q2WK
     Route: 058
     Dates: start: 20200605, end: 20200619
  8. ROMIPLOSTIM [Suspect]
     Active Substance: ROMIPLOSTIM
     Dosage: 1500 DOSAGE FORM, QWK
     Route: 058
     Dates: start: 20200626, end: 20210205
  9. ROMIPLOSTIM [Suspect]
     Active Substance: ROMIPLOSTIM
     Dosage: 1500 DOSAGE FORM, QWK
     Route: 058
     Dates: start: 20210219, end: 20210326
  10. ROMIPLOSTIM [Suspect]
     Active Substance: ROMIPLOSTIM
     Dosage: 1500 DOSAGE FORM, QWK  *SINGLE *SINGLE *SINGLE
     Route: 058
     Dates: start: 20210405, end: 20210802
  11. FILGRASTIM [Concomitant]
     Active Substance: FILGRASTIM
     Indication: Aplastic anaemia
     Dosage: UNK
     Route: 065
  12. SULFAMETHOXAZOLE\TRIMETHOPRIM [Concomitant]
     Active Substance: SULFAMETHOXAZOLE\TRIMETHOPRIM
     Indication: Product used for unknown indication
     Dosage: UNK
     Route: 048
  13. FLUCONAZOLE [Concomitant]
     Active Substance: FLUCONAZOLE
     Indication: Product used for unknown indication
     Dosage: UNK
     Route: 048
  14. AMITIZA [Concomitant]
     Active Substance: LUBIPROSTONE
     Indication: Constipation
     Dosage: UNK
     Route: 048
  15. CARBAZOCHROME SULFONATE NA [Concomitant]
     Indication: Product used for unknown indication
     Dosage: UNK
     Route: 048
  16. VONOPRAZAN FUMARATE [Concomitant]
     Active Substance: VONOPRAZAN FUMARATE
     Indication: Product used for unknown indication
     Dosage: UNK
     Route: 048
  17. MIYA-BM [Concomitant]
     Active Substance: CLOSTRIDIUM BUTYRICUM SPORES STRAIN M-55
     Indication: Product used for unknown indication
     Dosage: UNK
     Route: 048
  18. METHYLCOBALAMIN [Concomitant]
     Active Substance: METHYLCOBALAMIN
     Indication: Product used for unknown indication
     Dosage: UNK
     Route: 048
  19. NEORAL [Concomitant]
     Active Substance: CYCLOSPORINE
     Indication: Aplastic anaemia
     Dosage: UNK
     Route: 048
  20. FUROSEMIDE [Concomitant]
     Active Substance: FUROSEMIDE
     Indication: Oedema peripheral
     Dosage: UNK
     Route: 048
  21. PRIMOBOLAN DEP [Concomitant]
     Indication: Aplastic anaemia
     Dosage: UNK
     Route: 048
  22. JADENU [Concomitant]
     Active Substance: DEFERASIROX
     Indication: Iron overload
     Dosage: UNK
     Route: 048

REACTIONS (1)
  - Acute myeloid leukaemia [Not Recovered/Not Resolved]

NARRATIVE: CASE EVENT DATE: 20211011
